FAERS Safety Report 12637306 (Version 1)
Quarter: 2016Q3

REPORT INFORMATION
  Report Type: Spontaneous
  Country: US (occurrence: US)
  Receive Date: 20160809
  Receipt Date: 20160809
  Transmission Date: 20161109
  Serious: No
  Sender: FDA-Public Use
  Company Number: US-BEH-2015055227

PATIENT
  Sex: Male
  Weight: 81 kg

DRUGS (22)
  1. LAMICTAL [Concomitant]
     Active Substance: LAMOTRIGINE
  2. L-ARGININE [Concomitant]
     Active Substance: ARGININE
  3. POTASSIUM CHLORIDE. [Concomitant]
     Active Substance: POTASSIUM CHLORIDE
  4. DIPHENHYDRAMINE. [Concomitant]
     Active Substance: DIPHENHYDRAMINE
  5. LIDOCAINE/PRILOCAINE [Concomitant]
     Active Substance: LIDOCAINE\PRILOCAINE
  6. LISINOPRIL. [Concomitant]
     Active Substance: LISINOPRIL
  7. MUPIROCIN. [Concomitant]
     Active Substance: MUPIROCIN
  8. LIPITOR [Concomitant]
     Active Substance: ATORVASTATIN CALCIUM
  9. ZOLPIDEM [Concomitant]
     Active Substance: ZOLPIDEM\ZOLPIDEM TARTRATE
  10. PRIVIGEN [Suspect]
     Active Substance: HUMAN IMMUNOGLOBULIN G
     Indication: IMMUNODEFICIENCY COMMON VARIABLE
     Route: 042
  11. SALINE SOLUTION [Concomitant]
     Active Substance: SODIUM CHLORIDE
  12. VITAMIN C [Concomitant]
     Active Substance: ASCORBIC ACID
  13. ACETAMINOPHEN. [Concomitant]
     Active Substance: ACETAMINOPHEN
  14. SODIUM CHLORIDE. [Concomitant]
     Active Substance: SODIUM CHLORIDE
  15. VITAMIN D [Concomitant]
     Active Substance: CHOLECALCIFEROL
  16. ONDANSETRON [Concomitant]
     Active Substance: ONDANSETRON
  17. SUPER OMEGA 3 [Concomitant]
  18. EPIPEN [Concomitant]
     Active Substance: EPINEPHRINE
  19. AMLODIPINE [Concomitant]
     Active Substance: AMLODIPINE BESYLATE
  20. FINASTERIDE. [Concomitant]
     Active Substance: FINASTERIDE
  21. BUPROPION. [Concomitant]
     Active Substance: BUPROPION
  22. BIOFLAVONOIDS [Concomitant]
     Active Substance: BIOFLAVONOIDS

REACTIONS (1)
  - Sinusitis [Unknown]
